FAERS Safety Report 13985555 (Version 2)
Quarter: 2017Q4

REPORT INFORMATION
  Report Type: Spontaneous
  Country: US (occurrence: US)
  Receive Date: 20170919
  Receipt Date: 20171003
  Transmission Date: 20180321
  Serious: Yes (Hospitalization, Other)
  Sender: FDA-Public Use
  Company Number: US-009507513-1709USA007802

PATIENT
  Age: 47 Year
  Sex: Female

DRUGS (2)
  1. DECADRON [Suspect]
     Active Substance: DEXAMETHASONE
     Indication: TUMOUR COMPRESSION
  2. DECADRON [Suspect]
     Active Substance: DEXAMETHASONE
     Indication: INFLAMMATION
     Dosage: 12MG A DAY
     Dates: start: 2017, end: 20170912

REACTIONS (14)
  - Confusional state [Unknown]
  - Adverse event [Unknown]
  - Starvation [Unknown]
  - Adverse drug reaction [Unknown]
  - Pyrexia [Not Recovered/Not Resolved]
  - Respiratory disorder [Unknown]
  - Chills [Unknown]
  - Asthenia [Unknown]
  - Adverse event [Unknown]
  - Pyrexia [Unknown]
  - Gastrointestinal motility disorder [Unknown]
  - Abdominal pain upper [Unknown]
  - Dehydration [Unknown]
  - Gastrooesophageal reflux disease [Unknown]

NARRATIVE: CASE EVENT DATE: 2017
